FAERS Safety Report 5956939-9 (Version None)
Quarter: 2008Q4

REPORT INFORMATION
  Report Type: 
  Country: None (occurrence: None)
  Receive Date: 20081118
  Receipt Date: 20081112
  Transmission Date: 20090506
  Serious: Yes (Hospitalization, Other)
  Sender: FDA-Public Use
  Company Number: JP-PFIZER INC-2008088854

PATIENT
  Age: 54 Year
  Sex: Male

DRUGS (5)
  1. NORVASC [Suspect]
     Route: 048
  2. UFT [Suspect]
     Indication: HEPATIC NEOPLASM MALIGNANT
     Route: 048
  3. ARTIST [Suspect]
     Route: 048
  4. FAMOTIDINE [Suspect]
     Route: 048
  5. OLMETEC [Suspect]
     Indication: HYPERTENSION
     Route: 048

REACTIONS (3)
  - BLOOD PRESSURE DECREASED [None]
  - INTENTIONAL OVERDOSE [None]
  - RENAL IMPAIRMENT [None]
